FAERS Safety Report 4374838-3 (Version None)
Quarter: 2004Q2

REPORT INFORMATION
  Report Type: 
  Country: None (occurrence: None)
  Receive Date: 20040604
  Receipt Date: 20040531
  Transmission Date: 20050107
  Serious: Yes (Other)
  Sender: FDA-Public Use
  Company Number: 2004-05-1687

PATIENT
  Age: 60 Year
  Sex: Male
  Weight: 60 kg

DRUGS (2)
  1. REBETOL [Suspect]
     Indication: HEPATITIS C
     Dosage: 600 MG ORAL
     Route: 048
     Dates: start: 20040511, end: 20040519
  2. INTRON A [Suspect]
     Indication: HEPATITIS C
     Dosage: 10 MIU INTRAMUSCULAR
     Route: 030
     Dates: start: 20040511, end: 20040519

REACTIONS (4)
  - ALANINE AMINOTRANSFERASE INCREASED [None]
  - ASPARTATE AMINOTRANSFERASE INCREASED [None]
  - BLOOD BILIRUBIN INCREASED [None]
  - JAUNDICE [None]
